FAERS Safety Report 7241154-1 (Version None)
Quarter: 2011Q1

REPORT INFORMATION
  Report Type: 
  Country: None (occurrence: None)
  Receive Date: 20110124
  Receipt Date: 20110117
  Transmission Date: 20110831
  Serious: Yes (Hospitalization, Other)
  Sender: FDA-Public Use
  Company Number: US-AMGEN-KDL443371

PATIENT
  Age: 21 Year
  Sex: Female

DRUGS (3)
  1. ENBREL [Suspect]
     Indication: PSORIASIS
     Dosage: 50 MG, 2 TIMES/WK
     Route: 058
     Dates: start: 20050101, end: 20060101
  2. ENBREL [Suspect]
     Dates: start: 20050101, end: 20050101
  3. PRENATAL VITAMINS [Concomitant]

REACTIONS (4)
  - NASOPHARYNGITIS [None]
  - PNEUMONIA [None]
  - PSORIASIS [None]
  - BREECH PRESENTATION [None]
